FAERS Safety Report 19352366 (Version 1)
Quarter: 2021Q2

REPORT INFORMATION
  Report Type: Report from Study
  Country: BR (occurrence: BR)
  Receive Date: 20210601
  Receipt Date: 20210601
  Transmission Date: 20210717
  Serious: Yes (Hospitalization, Other)
  Sender: FDA-Public Use
  Company Number: NVSC2021BR116783

PATIENT
  Sex: Female

DRUGS (5)
  1. VITAMIN D [Concomitant]
     Active Substance: VITAMIN D NOS
     Indication: PRODUCT USED FOR UNKNOWN INDICATION
     Dosage: UNK
     Route: 065
  2. RIBOCICLIB. [Concomitant]
     Active Substance: RIBOCICLIB
     Indication: NEOPLASM MALIGNANT
     Dosage: 3 DF, QD (DAILY DURING21 DAYS AND PAUSE OF 7)
     Route: 065
     Dates: start: 20210228
  3. PREDNISONE. [Concomitant]
     Active Substance: PREDNISONE
     Indication: HYPERSENSITIVITY
     Dosage: 20 MG
     Route: 065
  4. PREDNISONE. [Concomitant]
     Active Substance: PREDNISONE
     Dosage: 60 MG, QD
     Route: 065
  5. FEMARA [Suspect]
     Active Substance: LETROZOLE
     Indication: HORMONE THERAPY
     Dosage: UNK (STARTED 1 WEK BEFORE STARTING KISQALI, AFTER LUNCH)
     Route: 065

REACTIONS (10)
  - Wound [Unknown]
  - Pleural effusion [Unknown]
  - Paraneoplastic dermatomyositis [Unknown]
  - Anaemia [Unknown]
  - Rheumatoid arthritis [Unknown]
  - Dyspnoea [Unknown]
  - Pyrexia [Unknown]
  - Metastases to lung [Unknown]
  - Immunosuppression [Recovering/Resolving]
  - Muscular weakness [Recovering/Resolving]
